FAERS Safety Report 16319876 (Version 1)
Quarter: 2019Q2

REPORT INFORMATION
  Report Type: Spontaneous
  Country: US (occurrence: US)
  Receive Date: 20190410
  Receipt Date: 20190410
  Transmission Date: 20190711
  Serious: Yes (Hospitalization)
  Sender: FDA-Public Use
  Company Number: None

PATIENT
  Age: 59 Year
  Sex: Female

DRUGS (16)
  1. FLUCONAZOLE. [Concomitant]
     Active Substance: FLUCONAZOLE
  2. LORAZEPAM. [Concomitant]
     Active Substance: LORAZEPAM
  3. VITAMIN B12 [Concomitant]
     Active Substance: CYANOCOBALAMIN
  4. ACYCLOVIR. [Concomitant]
     Active Substance: ACYCLOVIR
  5. HUMALOG JR [Concomitant]
  6. PANTOPRAZOLE [Concomitant]
     Active Substance: PANTOPRAZOLE
  7. BUPROPION. [Concomitant]
     Active Substance: BUPROPION
  8. VITAMIN D3 [Concomitant]
     Active Substance: CHOLECALCIFEROL
  9. TACROLIMUS. [Concomitant]
     Active Substance: TACROLIMUS
  10. ENTECAVIR  0.5MG TAB [Suspect]
     Active Substance: ENTECAVIR
     Indication: CHRONIC HEPATITIS B
     Route: 048
     Dates: start: 20181215
  11. ATORVASTATIN [Concomitant]
     Active Substance: ATORVASTATIN
  12. CITALOPRAM [Concomitant]
     Active Substance: CITALOPRAM HYDROBROMIDE
  13. LANTUS SOLOS [Concomitant]
  14. TACROLIMUS. [Concomitant]
     Active Substance: TACROLIMUS
  15. ALLOPURINOL. [Concomitant]
     Active Substance: ALLOPURINOL
  16. RITUXAN [Concomitant]
     Active Substance: RITUXIMAB

REACTIONS (3)
  - Viral infection [None]
  - Diarrhoea [None]
  - Tachycardia [None]

NARRATIVE: CASE EVENT DATE: 201812
